FAERS Safety Report 6805297-6 (Version None)
Quarter: 2010Q2

REPORT INFORMATION
  Report Type: 
  Country: None (occurrence: None)
  Receive Date: 20100628
  Receipt Date: 20071105
  Transmission Date: 20101027
  Serious: No
  Sender: FDA-Public Use
  Company Number: US-PFIZER INC-2007096334

PATIENT
  Sex: Female

DRUGS (2)
  1. XALATAN [Suspect]
     Indication: GLAUCOMA
     Dates: start: 20051001
  2. TRAVATAN [Concomitant]
     Indication: GLAUCOMA
     Dates: start: 20050101

REACTIONS (5)
  - ASTHENOPIA [None]
  - EYE DISORDER [None]
  - EYE SWELLING [None]
  - FEELING ABNORMAL [None]
  - VISION BLURRED [None]
